FAERS Safety Report 6562796-2 (Version None)
Quarter: 2010Q1

REPORT INFORMATION
  Report Type: 
  Country: None (occurrence: None)
  Receive Date: 20100130
  Receipt Date: 20091217
  Transmission Date: 20100710
  Serious: No
  Sender: FDA-Public Use
  Company Number: US-ABBOTT-09P-163-0610071-00

PATIENT
  Sex: Male
  Weight: 70.37 kg

DRUGS (9)
  1. HUMIRA [Suspect]
     Indication: RHEUMATOID ARTHRITIS
     Dates: start: 20080101, end: 20081201
  2. HUMIRA [Suspect]
     Dates: start: 20090301, end: 20090601
  3. SYMBICORT [Concomitant]
     Indication: ASTHMA
  4. ETODOLAC [Concomitant]
     Indication: RHEUMATOID ARTHRITIS
  5. HALDOL [Concomitant]
     Indication: SCHIZOPHRENIA
  6. BENZOTROPINE [Concomitant]
     Indication: PROPHYLAXIS
  7. LOVASTATIN [Concomitant]
     Indication: BLOOD CHOLESTEROL INCREASED
  8. METHOTREXATE [Concomitant]
     Indication: RHEUMATOID ARTHRITIS
  9. FLUCATASONE [Concomitant]
     Indication: ASTHMA

REACTIONS (3)
  - COUGH [None]
  - DYSPNOEA [None]
  - RESPIRATORY TRACT INFECTION [None]
